FAERS Safety Report 13485171 (Version 1)
Quarter: 2017Q2

REPORT INFORMATION
  Report Type: Spontaneous
  Country: IN (occurrence: IN)
  Receive Date: 20170425
  Receipt Date: 20170425
  Transmission Date: 20170830
  Serious: Yes (Hospitalization, Other)
  Sender: FDA-Public Use
  Company Number: IN-ACCORD-050767

PATIENT
  Age: 22 Year
  Sex: Female

DRUGS (5)
  1. SERTRALINE [Interacting]
     Active Substance: SERTRALINE HYDROCHLORIDE
     Indication: SCHIZOPHRENIA
  2. LORAZEPAM. [Concomitant]
     Active Substance: LORAZEPAM
     Indication: AGGRESSION
     Route: 042
  3. QUETIAPINE. [Suspect]
     Active Substance: QUETIAPINE
     Indication: SCHIZOPHRENIA
     Dosage: STARTED ON QUETIAPINE WHICH WAS GRADUALLY INCREASED TO 500 MG/DAY BY 17TH DAY OF ADMISSION
  4. SERTRALINE [Interacting]
     Active Substance: SERTRALINE HYDROCHLORIDE
     Indication: SCHIZOPHRENIA
     Dosage: STARTED AT 25 MG/DAY WHICH WAS LATER INCREASED TO 50 MG DAY AFTER 5 DAYS
  5. LORAZEPAM. [Concomitant]
     Active Substance: LORAZEPAM
     Indication: AGGRESSION
     Route: 042

REACTIONS (2)
  - Drug interaction [Unknown]
  - Neutropenia [Recovered/Resolved]
